FAERS Safety Report 8390703-9 (Version None)
Quarter: 2012Q2

REPORT INFORMATION
  Report Type: 
  Country: None (occurrence: None)
  Receive Date: 20120529
  Receipt Date: 20120523
  Transmission Date: 20120825
  Serious: Yes (Hospitalization)
  Sender: FDA-Public Use
  Company Number: PHHY2012CA044691

PATIENT
  Age: 47 Year
  Sex: Male

DRUGS (2)
  1. METHOTREXATE [Suspect]
     Dosage: 2.5 MG, FOUR TIMES WEEKLY
  2. METOLAZONE [Suspect]
     Dosage: 2.5 MG, FOUR TIMES A WEEK

REACTIONS (7)
  - MUCOSAL INFLAMMATION [None]
  - RASH [None]
  - PYREXIA [None]
  - VOMITING [None]
  - DRUG DISPENSING ERROR [None]
  - PANCYTOPENIA [None]
  - NAUSEA [None]
